FAERS Safety Report 21528310 (Version 1)
Quarter: 2022Q4

REPORT INFORMATION
  Report Type: Spontaneous
  Country: US (occurrence: None)
  Receive Date: 20221031
  Receipt Date: 20221031
  Transmission Date: 20230113
  Serious: Yes (Hospitalization)
  Sender: FDA-Public Use
  Company Number: US-ROCHE-3208690

PATIENT
  Sex: Female

DRUGS (2)
  1. ACTEMRA [Suspect]
     Active Substance: TOCILIZUMAB
     Indication: Rheumatoid arthritis
     Route: 058
     Dates: start: 20220607
  2. ACTEMRA [Suspect]
     Active Substance: TOCILIZUMAB

REACTIONS (2)
  - Swelling [Unknown]
  - Thrombosis [Unknown]
